FAERS Safety Report 21341950 (Version 2)
Quarter: 2022Q3

REPORT INFORMATION
  Report Type: Spontaneous
  Country: KR (occurrence: KR)
  Receive Date: 20220916
  Receipt Date: 20220927
  Transmission Date: 20221027
  Serious: Yes (Death, Life-Threatening, Hospitalization, Other)
  Sender: FDA-Public Use
  Company Number: KR-SA-2022SA381502

PATIENT
  Age: 73 Year
  Sex: Female

DRUGS (1)
  1. DOCETAXEL [Suspect]
     Active Substance: DOCETAXEL
     Indication: Lip and/or oral cavity cancer
     Dosage: UNK

REACTIONS (11)
  - Anaphylactic reaction [Fatal]
  - Flushing [Fatal]
  - Pruritus [Fatal]
  - Somnolence [Fatal]
  - Chest discomfort [Fatal]
  - Dyspnoea [Fatal]
  - Seizure [Fatal]
  - Circulatory collapse [Fatal]
  - Mental impairment [Fatal]
  - Cardiac arrest [Fatal]
  - Pulseless electrical activity [Fatal]
